FAERS Safety Report 8739232 (Version 3)
Quarter: 2013Q3

REPORT INFORMATION
  Report Type: Report from Study
  Country: CA (occurrence: CA)
  Receive Date: 20120823
  Receipt Date: 20130802
  Transmission Date: 20140515
  Serious: Yes (Hospitalization, Other)
  Sender: FDA-Public Use
  Company Number: CA-JNJFOC-20120806887

PATIENT
  Age: 55 Year
  Sex: Female
  Weight: 86 kg

DRUGS (9)
  1. REMICADE [Suspect]
     Indication: COLITIS ULCERATIVE
     Dosage: 11TH INFUSION
     Route: 042
     Dates: start: 20130531
  2. REMICADE [Suspect]
     Indication: COLITIS ULCERATIVE
     Route: 042
     Dates: start: 20120113
  3. REMICADE [Suspect]
     Indication: COLITIS ULCERATIVE
     Dosage: 5TH INFUSION
     Route: 042
     Dates: start: 20120618
  4. IMURAN [Concomitant]
     Dosage: 4 TABLETS
     Route: 048
  5. ALL OTHER THERAPEUTICS [Concomitant]
     Route: 065
  6. AZATHIOPRINE [Concomitant]
     Route: 048
  7. KRILL OIL [Concomitant]
     Route: 065
  8. RATIO EMTEC [Concomitant]
     Route: 065
  9. COVERSYL [Concomitant]
     Route: 065

REACTIONS (10)
  - Arrhythmia [Not Recovered/Not Resolved]
  - Syncope [Not Recovered/Not Resolved]
  - Contusion [Not Recovered/Not Resolved]
  - Palpitations [Not Recovered/Not Resolved]
  - Chest pain [Recovered/Resolved]
  - Paraesthesia [Recovered/Resolved]
  - Feeling abnormal [Recovered/Resolved]
  - Blood pressure increased [Recovered/Resolved]
  - Fatigue [Recovered/Resolved]
  - Rash [Not Recovered/Not Resolved]
